FAERS Safety Report 8774031 (Version 2)
Quarter: 2012Q4

REPORT INFORMATION
  Report Type: 
  Country: BR (occurrence: BR)
  Receive Date: 20120908
  Receipt Date: 20120924
  Transmission Date: 20130627
  Serious: Yes (Hospitalization)
  Sender: FDA-Public Use
  Company Number: BR-ABBOTT-12P-020-0975093-00

PATIENT
  Sex: Male
  Weight: 100 kg

DRUGS (2)
  1. DEPAKENE TABLETS [Suspect]
     Indication: HEAD DISCOMFORT
     Dosage: In the morning / at night
     Route: 048
     Dates: start: 2004
  2. NEOVITE [Concomitant]
     Indication: HEAD DISCOMFORT
     Dosage: In the morning / at night
     Route: 048
     Dates: start: 2004

REACTIONS (8)
  - Malaise [Unknown]
  - Drug ineffective [Unknown]
  - Hospitalisation [Unknown]
  - Hospitalisation [Unknown]
  - Head discomfort [Not Recovered/Not Resolved]
  - Headache [Not Recovered/Not Resolved]
  - Insomnia [Not Recovered/Not Resolved]
  - Bone disorder [Not Recovered/Not Resolved]
